FAERS Safety Report 7097455 (Version 5)
Quarter: 2019Q2

REPORT INFORMATION
  Report Type: Spontaneous
  Country: GB (occurrence: GB)
  Receive Date: 20090826
  Receipt Date: 20190423
  Transmission Date: 20190711
  Serious: Yes (Death, Hospitalization)
  Sender: FDA-Public Use
  Company Number: GB-MYLANLABS-2009S1014440

PATIENT
  Age: 54 Year
  Sex: Male

DRUGS (8)
  1. FELODIPINE. [Suspect]
     Active Substance: FELODIPINE
     Indication: PRODUCT USED FOR UNKNOWN INDICATION
     Dosage: 250 MILLIGRAM, TOTAL  (50 TABLETS OF 5MG)
     Route: 048
  2. LAMOTRIGINE. [Concomitant]
     Active Substance: LAMOTRIGINE
     Indication: PRODUCT USED FOR UNKNOWN INDICATION
     Dosage: 100 MG,BID
  3. FELODIPINE. [Suspect]
     Active Substance: FELODIPINE
     Dosage: 50 DOSAGE FORM
     Route: 048
  4. ALCOHOL. [Concomitant]
     Active Substance: ALCOHOL
     Indication: PRODUCT USED FOR UNKNOWN INDICATION
     Dosage: UNK
  5. FELODIPINE MYLAN [Suspect]
     Active Substance: FELODIPINE
     Indication: PRODUCT USED FOR UNKNOWN INDICATION
     Dosage: 10 MILLIGRAM, QD
     Route: 065
  6. CARBAMAZEPINE. [Concomitant]
     Active Substance: CARBAMAZEPINE
     Indication: PRODUCT USED FOR UNKNOWN INDICATION
     Dosage: 1 G,BID
     Route: 065
  7. BENDROFLUMETHIAZIDE [Suspect]
     Active Substance: BENDROFLUMETHIAZIDE
     Indication: PRODUCT USED FOR UNKNOWN INDICATION
     Dosage: 2.5 MG,QD
  8. FLUOXETINE [Concomitant]
     Active Substance: FLUOXETINE HYDROCHLORIDE
     Indication: PRODUCT USED FOR UNKNOWN INDICATION
     Dosage: 20 MILLIGRAM, QD (IN THE MORNING)
     Route: 065

REACTIONS (15)
  - Metabolic acidosis [Fatal]
  - Hyperglycaemia [Unknown]
  - Dizziness [Unknown]
  - Circulatory collapse [Fatal]
  - Haemodynamic instability [Fatal]
  - Paraesthesia [Unknown]
  - Hypotension [Not Recovered/Not Resolved]
  - Acute respiratory distress syndrome [Fatal]
  - Renal failure [Fatal]
  - Suicide attempt [Fatal]
  - Intentional overdose [Fatal]
  - Nausea [Unknown]
  - Confusional state [Unknown]
  - Somnolence [Unknown]
  - Vomiting [Unknown]
